FAERS Safety Report 7023919-4 (Version None)
Quarter: 2010Q4

REPORT INFORMATION
  Report Type: 
  Country: None (occurrence: None)
  Receive Date: 20101001
  Receipt Date: 20100920
  Transmission Date: 20110411
  Serious: Yes (Other)
  Sender: FDA-Public Use
  Company Number: BR-ELI_LILLY_AND_COMPANY-BR201009006034

PATIENT
  Sex: Female

DRUGS (17)
  1. CYMBALTA [Suspect]
     Dosage: UNK, UNKNOWN
     Route: 065
  2. VENLAFAXINA [Concomitant]
     Indication: FIBROMYALGIA
     Dosage: UNK, UNKNOWN
     Route: 065
  3. OMEPRAZOLE [Concomitant]
     Indication: HYPERSENSITIVITY
     Dosage: UNK, UNKNOWN
     Route: 065
  4. OTHER IMMUNOGLOBULINS [Concomitant]
     Indication: ANAPHYLACTIC SHOCK
     Dosage: UNK, UNKNOWN
     Route: 065
  5. CORTICOSTEROIDS [Concomitant]
     Indication: ANAPHYLACTIC SHOCK
     Dosage: UNK, UNKNOWN
     Route: 065
  6. ADRENALINA [Concomitant]
     Indication: ANAPHYLACTIC SHOCK
     Dosage: UNK, UNKNOWN
     Route: 065
  7. RABIES VACCINE [Concomitant]
     Dosage: UNK, UNKNOWN
     Route: 065
  8. ANTIINFLAMMATORY/ANTIRHEUMATIC PRODUCTS [Concomitant]
     Dosage: UNK, UNKNOWN
     Route: 065
  9. ANTIDEPRESSANTS [Concomitant]
     Dosage: UNK, UNKNOWN
     Route: 065
  10. ANXIOLYTICS [Concomitant]
     Dosage: UNK, UNKNOWN
     Route: 065
  11. PRELONE [Concomitant]
     Dosage: UNK, UNKNOWN
     Route: 065
  12. BROMAZEPAM [Concomitant]
     Dosage: UNK, UNKNOWN
     Route: 065
  13. RIVOTRIL [Concomitant]
     Dosage: UNK, UNKNOWN
     Route: 065
  14. DIPIRONA [Concomitant]
     Dosage: UNK, UNKNOWN
     Route: 065
  15. CATAFLAM [Concomitant]
     Dosage: UNK, UNKNOWN
     Route: 065
  16. FENERGAN [Concomitant]
     Indication: HYPERSENSITIVITY
     Dosage: UNK, UNKNOWN
     Route: 065
  17. TRAMADOL HCL [Concomitant]
     Indication: MIGRAINE
     Dosage: UNK, UNKNOWN
     Route: 065

REACTIONS (2)
  - RADIUS FRACTURE [None]
  - SYNCOPE [None]
